FAERS Safety Report 9240305 (Version 1)
Quarter: 2013Q2

REPORT INFORMATION
  Report Type: Spontaneous
  Country: US (occurrence: US)
  Receive Date: 20130418
  Receipt Date: 20130418
  Transmission Date: 20140414
  Serious: No
  Sender: FDA-Public Use
  Company Number: US-009507513-1304USA007122

PATIENT
  Sex: Female

DRUGS (1)
  1. DULERA [Suspect]
     Indication: LUNG DISORDER
     Dosage: 2 DF, BID (2 PUFFS TWICE A DAY); 1 STANDARD PACKAGE AER W/ADAP OF 8.8
     Route: 055
     Dates: start: 20130331

REACTIONS (3)
  - Wrong technique in drug usage process [Unknown]
  - Product quality issue [Unknown]
  - No adverse event [Unknown]
